FAERS Safety Report 26109015 (Version 2)
Quarter: 2025Q4

REPORT INFORMATION
  Report Type: Spontaneous
  Country: US (occurrence: US)
  Receive Date: 20251201
  Receipt Date: 20251204
  Transmission Date: 20260117
  Serious: Yes (Hospitalization)
  Sender: BELCHER PHARMACEUTICALS
  Company Number: US-BPI LABS, LLC-2025US005995

PATIENT

DRUGS (4)
  1. SEMAGLUTIDE [Suspect]
     Active Substance: SEMAGLUTIDE
     Indication: Weight control
     Dosage: STRENGTH: 5 MG/2 ML (2.5 MG/ML) (2 UNITS), 1/WEEK
     Route: 058
  2. HYDROXYZINE [Concomitant]
     Active Substance: HYDROXYZINE HYDROCHLORIDE
     Route: 065
  3. CLONAZEPAM [Concomitant]
     Active Substance: CLONAZEPAM
     Route: 065
  4. DESVENLAFAXINE [Concomitant]
     Active Substance: DESVENLAFAXINE
     Route: 065

REACTIONS (3)
  - Drug hypersensitivity [Unknown]
  - Panic attack [Unknown]
  - Off label use [Unknown]
